FAERS Safety Report 8142228-3 (Version None)
Quarter: 2012Q1

REPORT INFORMATION
  Report Type: 
  Country: None (occurrence: None)
  Receive Date: 20120103
  Receipt Date: 20111024
  Transmission Date: 20120608
  Serious: No
  Sender: FDA-Public Use
  Company Number: AE-2011-002642

PATIENT
  Age: 56 Year
  Sex: Male
  Weight: 117.9352 kg

DRUGS (8)
  1. LOSARTAN POTASSIUM [Concomitant]
  2. OMEPRAZOLE [Concomitant]
  3. NAPROXEN [Concomitant]
  4. PEGASYS [Concomitant]
  5. MISOPROSTOL [Concomitant]
  6. INCIVEK [Suspect]
     Dosage: 2250 MG (750 MG,3 IN 1 D),ORAL
     Route: 048
     Dates: start: 20111014
  7. GLYBURIDE WITH METFORMIN (SIL-NORBORAL) [Concomitant]
  8. RIBAVIRIN [Concomitant]

REACTIONS (1)
  - DIARRHOEA [None]
